FAERS Safety Report 9555694 (Version 3)
Quarter: 2013Q4

REPORT INFORMATION
  Report Type: Report from Study
  Country: DE (occurrence: DE)
  Receive Date: 20130926
  Receipt Date: 20131014
  Transmission Date: 20140711
  Serious: Yes (Death, Other)
  Sender: FDA-Public Use
  Company Number: PHHY2013DE101123

PATIENT
  Sex: Male
  Weight: 90 kg

DRUGS (1)
  1. ICL670A [Suspect]
     Indication: MYELODYSPLASTIC SYNDROME
     Dosage: 500 MG, DAILY
     Dates: start: 20110718

REACTIONS (3)
  - Myelodysplastic syndrome [Fatal]
  - Organ failure [Fatal]
  - Creatinine renal clearance decreased [Not Recovered/Not Resolved]
